FAERS Safety Report 24092169 (Version 1)
Quarter: 2024Q3

REPORT INFORMATION
  Report Type: Spontaneous
  Country: US (occurrence: US)
  Receive Date: 20240715
  Receipt Date: 20240715
  Transmission Date: 20241017
  Serious: No
  Sender: BIOCON
  Company Number: US-MIMS-BCONMC-4358

PATIENT

DRUGS (5)
  1. FULPHILA [Suspect]
     Active Substance: PEGFILGRASTIM-JMDB
     Indication: Small cell lung cancer
     Dosage: 6 MG
     Route: 058
     Dates: start: 20231020
  2. FULPHILA [Suspect]
     Active Substance: PEGFILGRASTIM-JMDB
     Indication: Brain cancer metastatic
  3. FULPHILA [Suspect]
     Active Substance: PEGFILGRASTIM-JMDB
     Indication: Hepatic cancer metastatic
  4. FULPHILA [Suspect]
     Active Substance: PEGFILGRASTIM-JMDB
     Indication: Bone cancer metastatic
  5. TAXOTERE [Concomitant]
     Active Substance: DOCETAXEL
     Indication: Small cell lung cancer
     Dosage: UNK UNK, BIWEEKLY
     Route: 058

REACTIONS (3)
  - Device defective [Unknown]
  - Device leakage [Unknown]
  - Needle issue [Unknown]
